FAERS Safety Report 6405017-3 (Version None)
Quarter: 2009Q4

REPORT INFORMATION
  Report Type: 
  Country: None (occurrence: None)
  Receive Date: 20091013
  Receipt Date: 20090923
  Transmission Date: 20100525
  Serious: Yes (Death, Hospitalization, Other)
  Sender: FDA-Public Use
  Company Number: AUR-APL-2009-00718

PATIENT
  Age: 11 Year
  Sex: Female

DRUGS (11)
  1. STAVUDINE [Suspect]
     Indication: HIV INFECTION
  2. EFAVIRENZ [Suspect]
     Indication: HIV INFECTION
  3. LAMIVUDINE [Suspect]
     Indication: HIV INFECTION
  4. AMPHOTERICIN B [Suspect]
     Indication: HIV INFECTION
  5. RIFAMPICIN [Suspect]
     Indication: PULMONARY TUBERCULOSIS
  6. PYRAZINAMIDE [Suspect]
     Indication: PULMONARY TUBERCULOSIS
  7. ISONIAZID [Suspect]
     Indication: PULMONARY TUBERCULOSIS
  8. ETHIONAMIDE [Suspect]
     Indication: PULMONARY TUBERCULOSIS
  9. PREDNISONE [Suspect]
  10. ACETAZOLAMIDE [Suspect]
  11. FLUCONAZOLE [Suspect]

REACTIONS (6)
  - DELIRIUM [None]
  - DEPRESSION [None]
  - GENERAL PHYSICAL HEALTH DETERIORATION [None]
  - HEMIPLEGIA [None]
  - INTRACRANIAL PRESSURE INCREASED [None]
  - MENINGITIS TUBERCULOUS [None]
